FAERS Safety Report 25941067 (Version 1)
Quarter: 2025Q4

REPORT INFORMATION
  Report Type: Spontaneous
  Country: US (occurrence: US)
  Receive Date: 20251020
  Receipt Date: 20251020
  Transmission Date: 20260119
  Serious: No
  Sender: Kenvue
  Company Number: US-KENVUE-20250916728

PATIENT
  Age: 4 Year
  Sex: Male

DRUGS (1)
  1. CHILDRENS ZYRTEC [Suspect]
     Active Substance: CETIRIZINE HYDROCHLORIDE
     Indication: Urticaria
     Dosage: 5 MILLIMETRE
     Route: 065

REACTIONS (1)
  - Product use in unapproved indication [Unknown]
